FAERS Safety Report 17928079 (Version 1)
Quarter: 2020Q2

REPORT INFORMATION
  Report Type: Spontaneous
  Country: GB (occurrence: GB)
  Receive Date: 20200623
  Receipt Date: 20200623
  Transmission Date: 20200714
  Serious: Yes (Other)
  Sender: FDA-Public Use
  Company Number: GB-GLAXOSMITHKLINE-GB2020104937

PATIENT
  Age: 33 Year
  Sex: Female
  Weight: 110 kg

DRUGS (1)
  1. LAMOTRIGINE. [Suspect]
     Active Substance: LAMOTRIGINE
     Indication: GENERALISED TONIC-CLONIC SEIZURE
     Dosage: 50 MG, QD (RISING TO 100MG )
     Route: 048
     Dates: start: 20191205

REACTIONS (5)
  - Suicidal behaviour [Unknown]
  - Suicidal ideation [Unknown]
  - Hallucination [Unknown]
  - Insomnia [Not Recovered/Not Resolved]
  - Emotional disorder [Unknown]

NARRATIVE: CASE EVENT DATE: 20191210
